FAERS Safety Report 17031258 (Version 1)
Quarter: 2019Q4

REPORT INFORMATION
  Report Type: Spontaneous
  Country: GB (occurrence: GB)
  Receive Date: 20191114
  Receipt Date: 20191114
  Transmission Date: 20200122
  Serious: Yes (Death)
  Sender: FDA-Public Use
  Company Number: GB-BAXTER-2019BAX022404

PATIENT
  Age: 62 Year
  Sex: Male

DRUGS (8)
  1. FUROSEMIDE 10MG/ML SOLUTION FOR INJECTION [Suspect]
     Active Substance: FUROSEMIDE
     Indication: PRODUCT USED FOR UNKNOWN INDICATION
     Dosage: 20MG
     Route: 042
     Dates: start: 20190403, end: 20190403
  2. TECHNESCAN MAG3 [Suspect]
     Active Substance: TECHNETIUM TC-99M TIATIDE
     Indication: SCAN
     Route: 042
     Dates: start: 20190403, end: 20190403
  3. TRIMETHOPRIM. [Concomitant]
     Active Substance: TRIMETHOPRIM
     Indication: PRODUCT USED FOR UNKNOWN INDICATION
     Route: 065
  4. LACTULOSE. [Concomitant]
     Active Substance: LACTULOSE
     Indication: PRODUCT USED FOR UNKNOWN INDICATION
     Route: 065
  5. PIVMECILLINAM [Concomitant]
     Active Substance: AMDINOCILLIN PIVOXIL
     Indication: PRODUCT USED FOR UNKNOWN INDICATION
     Route: 065
  6. CYCLIZINE [Concomitant]
     Active Substance: CYCLIZINE
     Indication: PRODUCT USED FOR UNKNOWN INDICATION
     Route: 065
  7. ZOPICLONE [Concomitant]
     Active Substance: ZOPICLONE
     Indication: PRODUCT USED FOR UNKNOWN INDICATION
     Route: 065
  8. NITROFURANTOIN. [Concomitant]
     Active Substance: NITROFURANTOIN
     Indication: PRODUCT USED FOR UNKNOWN INDICATION
     Route: 065

REACTIONS (2)
  - Multiple organ dysfunction syndrome [Fatal]
  - Incorrect drug administration rate [Unknown]

NARRATIVE: CASE EVENT DATE: 20190403
